FAERS Safety Report 9468157 (Version 2)
Quarter: 2013Q3

REPORT INFORMATION
  Report Type: Spontaneous
  Country: US (occurrence: None)
  Receive Date: 20130816
  Receipt Date: 20130820
  Transmission Date: 20140515
  Serious: Yes (Death)
  Sender: FDA-Public Use
  Company Number: TPA2013A07618

PATIENT
  Age: 72 Year
  Sex: Male
  Weight: 72.58 kg

DRUGS (2)
  1. COLCRYS [Suspect]
     Indication: GOUT
     Dosage: 0.6 MG, 1 IN 1 D, PER ORAL
     Route: 048
     Dates: start: 2010, end: 20130803
  2. ALL OTHER THERAPEUTIC PRODUCTS [Concomitant]

REACTIONS (1)
  - Oesophageal carcinoma [None]
